FAERS Safety Report 4709061-3 (Version None)
Quarter: 2005Q3

REPORT INFORMATION
  Report Type: 
  Country: None (occurrence: None)
  Receive Date: 20050707
  Receipt Date: 20050624
  Transmission Date: 20060218
  Serious: Yes (Other)
  Sender: FDA-Public Use
  Company Number: 2005BH000423

PATIENT
  Age: 65 Year
  Sex: Female
  Weight: 88.9 kg

DRUGS (1)
  1. DOBUTAMINE HCL IN 5% DEXTROSE INJECTION [Suspect]
     Indication: CARDIAC STRESS TEST
     Dosage: IV
     Route: 042
     Dates: start: 20050624, end: 20050624

REACTIONS (4)
  - DEPRESSED LEVEL OF CONSCIOUSNESS [None]
  - HEART RATE INCREASED [None]
  - HYPOGLYCAEMIA [None]
  - TREMOR [None]
